FAERS Safety Report 8732512 (Version 2)
Quarter: 2015Q2

REPORT INFORMATION
  Report Type: Report from Study
  Country: US (occurrence: US)
  Receive Date: 20120820
  Receipt Date: 20150406
  Transmission Date: 20150821
  Serious: Yes (Other)
  Sender: FDA-Public Use
  Company Number: US-ROCHE-1101211

PATIENT
  Sex: Female

DRUGS (5)
  1. LIDOCAINE DRIP [Concomitant]
     Route: 042
  2. ATROPINE [Concomitant]
     Active Substance: ATROPINE
     Route: 042
  3. ACTIVASE [Suspect]
     Active Substance: ALTEPLASE
     Indication: ACUTE MYOCARDIAL INFARCTION
     Dosage: BOLUS 15 MG, INFUSION AT 100 CC/HR, DECREASED TO 35 CC/HR
     Route: 040
  4. NITRO DRIP [Concomitant]
  5. LIDOCAINE DRIP [Concomitant]
     Dosage: BOLUS, 2 GM IN 250 CC DISTILLED WATER, 15 CC/HR
     Route: 042

REACTIONS (3)
  - Sinus bradycardia [Unknown]
  - Vomiting [Unknown]
  - Chest discomfort [Recovered/Resolved]
